FAERS Safety Report 6795207-2 (Version None)
Quarter: 2010Q2

REPORT INFORMATION
  Report Type: 
  Country: None (occurrence: None)
  Receive Date: 20100625
  Receipt Date: 20100617
  Transmission Date: 20101027
  Serious: Yes (Other)
  Sender: FDA-Public Use
  Company Number: JP-SANOFI-AVENTIS-2010SA022082

PATIENT
  Age: 79 Year
  Sex: Female

DRUGS (11)
  1. MYSLEE [Suspect]
     Indication: INSOMNIA
     Route: 048
  2. HORIZON [Concomitant]
     Indication: ENDOSCOPY
     Route: 042
     Dates: start: 20100108, end: 20100108
  3. GLUCAGON [Concomitant]
     Indication: ENDOSCOPY
     Route: 065
     Dates: start: 20100108, end: 20100108
  4. URSO 250 [Concomitant]
     Route: 048
  5. BEZAFIBRATE [Concomitant]
     Indication: HYPERLIPIDAEMIA
     Route: 048
  6. ADALAT CC [Concomitant]
     Indication: HYPERTENSION
     Route: 048
  7. BUFFERIN [Concomitant]
     Route: 048
  8. ALOSENN [Concomitant]
     Indication: CONSTIPATION
     Route: 048
  9. DEPAS [Concomitant]
     Indication: INSOMNIA
     Route: 048
  10. OMEPRAL [Concomitant]
     Indication: REFLUX OESOPHAGITIS
     Route: 048
  11. OLMETEC [Concomitant]
     Indication: HYPERTENSION
     Route: 048

REACTIONS (4)
  - CELLULITIS [None]
  - INDURATION [None]
  - PAIN IN EXTREMITY [None]
  - THROMBOPHLEBITIS [None]
